FAERS Safety Report 13960270 (Version 5)
Quarter: 2019Q2

REPORT INFORMATION
  Report Type: Report from Study
  Country: CN (occurrence: CN)
  Receive Date: 20170912
  Receipt Date: 20190509
  Transmission Date: 20190711
  Serious: Yes (Hospitalization)
  Sender: FDA-Public Use
  Company Number: CN-ROCHE-1992277

PATIENT
  Sex: Male

DRUGS (1)
  1. AVASTIN [Suspect]
     Active Substance: BEVACIZUMAB
     Indication: COLORECTAL CANCER
     Route: 041
     Dates: start: 20170309

REACTIONS (6)
  - Asthenia [Unknown]
  - Drug resistance [Unknown]
  - Neoplasm progression [Unknown]
  - Herpes zoster [Recovering/Resolving]
  - Immunodeficiency [Recovering/Resolving]
  - Drug ineffective [Unknown]
